FAERS Safety Report 9444732 (Version 2)
Quarter: 2013Q4

REPORT INFORMATION
  Report Type: Report from Study
  Country: DE (occurrence: DE)
  Receive Date: 20130807
  Receipt Date: 20131206
  Transmission Date: 20140711
  Serious: Yes (Hospitalization)
  Sender: FDA-Public Use
  Company Number: PHHY2013DE083932

PATIENT
  Sex: Female

DRUGS (3)
  1. FTY 720 [Suspect]
     Indication: MULTIPLE SCLEROSIS
     Dosage: 0.5 MG, QD
     Route: 048
     Dates: start: 20121219
  2. RAMIPRIL [Concomitant]
     Dosage: 1 DF, QD
     Dates: start: 201208
  3. CERAZETTE [Concomitant]
     Dosage: 1 DF, QD
     Dates: start: 1996

REACTIONS (2)
  - Calculus ureteric [Recovered/Resolved]
  - Pyelonephritis [Recovered/Resolved]
